FAERS Safety Report 10940444 (Version 2)
Quarter: 2015Q2

REPORT INFORMATION
  Report Type: Spontaneous
  Country: US (occurrence: US)
  Receive Date: 20150322
  Receipt Date: 20150524
  Transmission Date: 20150821
  Serious: No
  Sender: FDA-Public Use
  Company Number: US-JNJFOC-20130713698

PATIENT
  Age: 58 Year
  Sex: Female
  Weight: 96.16 kg

DRUGS (11)
  1. ASPIRIN BABY [Concomitant]
     Indication: CARDIAC DISORDER
     Dosage: INITIATED APPROXIMATELY 2-4 YEARS AGO
     Route: 048
  2. XANAX [Concomitant]
     Active Substance: ALPRAZOLAM
     Indication: ANXIETY
     Dosage: INITIATED APPROXIMATELY 15 OR MORE YEARS AGO
     Route: 048
  3. XANAX [Concomitant]
     Active Substance: ALPRAZOLAM
     Indication: PANIC ATTACK
     Dosage: INITIATED APPROXIMATELY 15 OR MORE YEARS AGO
     Route: 048
  4. FAMOTIDINE. [Concomitant]
     Active Substance: FAMOTIDINE
     Indication: HIATUS HERNIA
     Route: 048
     Dates: start: 1992
  5. LISINOPRIL. [Concomitant]
     Active Substance: LISINOPRIL
     Indication: RENAL DISORDER
     Dosage: INITIATED APPROXIMATELY A YEAR AGO
     Route: 048
  6. PAXIL [Concomitant]
     Active Substance: PAROXETINE HYDROCHLORIDE
     Indication: PANIC ATTACK
     Dosage: INITIATED AT LEAST 15 YEARS AGO,
     Route: 048
  7. INVOKANA [Suspect]
     Active Substance: CANAGLIFLOZIN
     Indication: TYPE 2 DIABETES MELLITUS
     Dosage: INITIATED PROBABLY 20 YEARS AGO
     Route: 048
     Dates: start: 201305, end: 201307
  8. VITAMIN E [Concomitant]
     Active Substance: .ALPHA.-TOCOPHEROL
     Indication: CARDIOVASCULAR DISORDER
     Dosage: INITIATED 10 YEARS AGO
     Route: 048
  9. LISINOPRIL. [Concomitant]
     Active Substance: LISINOPRIL
     Indication: BLOOD PRESSURE
     Dosage: INITIATED APPROXIMATELY A YEAR AGO
     Route: 048
  10. ATENOLOL. [Concomitant]
     Active Substance: ATENOLOL
     Indication: BLOOD PRESSURE
     Dosage: INITIATED APPROXIMATELY 20 YEARS AGO
     Route: 048
  11. PAXIL [Concomitant]
     Active Substance: PAROXETINE HYDROCHLORIDE
     Indication: ANXIETY
     Dosage: INITIATED AT LEAST 15 YEARS AGO,
     Route: 048

REACTIONS (2)
  - Alopecia [Not Recovered/Not Resolved]
  - Blood glucose increased [Not Recovered/Not Resolved]

NARRATIVE: CASE EVENT DATE: 201305
